FAERS Safety Report 12758524 (Version 1)
Quarter: 2016Q3

REPORT INFORMATION
  Report Type: Spontaneous
  Country: US (occurrence: US)
  Receive Date: 20160917
  Receipt Date: 20160917
  Transmission Date: 20161109
  Serious: Yes (Other)
  Sender: FDA-Public Use
  Company Number: None

PATIENT
  Age: 20 Year
  Sex: Female
  Weight: 99 kg

DRUGS (2)
  1. BIRTH CONTROL PILL [Concomitant]
     Active Substance: UNSPECIFIED INGREDIENT
  2. HYOSCYAMINE SULFATE 0.125MG [Suspect]
     Active Substance: HYOSCYAMINE SULFATE

REACTIONS (2)
  - Dizziness [None]
  - Migraine [None]

NARRATIVE: CASE EVENT DATE: 20160616
